FAERS Safety Report 20617433 (Version 1)
Quarter: 2022Q1

REPORT INFORMATION
  Report Type: Spontaneous
  Country: US (occurrence: None)
  Receive Date: 20220320
  Receipt Date: 20220320
  Transmission Date: 20220423
  Serious: Yes (Hospitalization)
  Sender: FDA-Public Use
  Company Number: None

PATIENT
  Sex: Male

DRUGS (16)
  1. ERLEADA [Suspect]
     Active Substance: APALUTAMIDE
     Indication: Prostate cancer
     Dosage: FREQUENCY : DAILY;?
     Route: 048
  2. ERLEADA [Suspect]
     Active Substance: APALUTAMIDE
     Indication: Bone cancer
  3. CYCLOBENZAPRINE 10 MG TAB [Concomitant]
  4. FERROUS SULFATE 325 MG TAB [Concomitant]
  5. GLUCOSAMINE CHONDRIOTIN TAB [Concomitant]
  6. NORCO 10 TAB [Concomitant]
  7. LORAZEPAM 1 MG TAB [Concomitant]
  8. ZOFRAN 8 MG TAB [Concomitant]
  9. PEPCID AC 10 MG TAB [Concomitant]
  10. PREDNISONE [Concomitant]
     Active Substance: PREDNISONE
  11. PROCHLORPERAZINE 10 MG TAB [Concomitant]
  12. SERTRALINE 100 MG TAB [Concomitant]
  13. FLOMAX 0.4 MG CAP [Concomitant]
  14. VITAMIN B12 TAB [Concomitant]
  15. VITAMIN E BLEND [Concomitant]
  16. ZOFRAN [Concomitant]
     Active Substance: ONDANSETRON HYDROCHLORIDE

REACTIONS (1)
  - Hospitalisation [None]
